FAERS Safety Report 20466770 (Version 1)
Quarter: 2022Q1

REPORT INFORMATION
  Report Type: Spontaneous
  Country: US (occurrence: US)
  Receive Date: 20220214
  Receipt Date: 20220214
  Transmission Date: 20220423
  Serious: Yes (Death, Hospitalization, Other)
  Sender: FDA-Public Use
  Company Number: US-SUN PHARMACEUTICAL INDUSTRIES LTD-2022R1-325902

PATIENT
  Age: 73 Year
  Sex: Female

DRUGS (1)
  1. AMLODIPINE [Suspect]
     Active Substance: AMLODIPINE BESYLATE
     Indication: Product used for unknown indication
     Dosage: 10 MILLIGRAM (40 TABLETS)
     Route: 065

REACTIONS (5)
  - Intentional overdose [Fatal]
  - Suicide attempt [Fatal]
  - Hypotension [Fatal]
  - Multiple organ dysfunction syndrome [Fatal]
  - Vasoplegia syndrome [Fatal]
